FAERS Safety Report 8578564-6 (Version None)
Quarter: 2012Q3

REPORT INFORMATION
  Report Type: 
  Country: None (occurrence: None)
  Receive Date: 20120726
  Receipt Date: 20120716
  Transmission Date: 20120928
  Serious: Yes (Other)
  Sender: FDA-Public Use
  Company Number: 2012MA008714

PATIENT
  Age: 45 Year
  Sex: Male

DRUGS (3)
  1. TEMOZOLOMIDE [Concomitant]
  2. LEVETIRACETAM (KEPPRA XR) [Suspect]
     Indication: CONVULSION PROPHYLAXIS
     Dosage: 3000 MG;QD
  3. DEXAMETHASONE [Concomitant]

REACTIONS (3)
  - TUBULOINTERSTITIAL NEPHRITIS [None]
  - CONVULSION [None]
  - RENAL FAILURE [None]
